FAERS Safety Report 9011609 (Version 4)
Quarter: 2013Q3

REPORT INFORMATION
  Report Type: Spontaneous
  Country: US (occurrence: US)
  Receive Date: 20130108
  Receipt Date: 20130906
  Transmission Date: 20140515
  Serious: Yes (Death, Hospitalization, Disabling, Other)
  Sender: FDA-Public Use
  Company Number: US-009507513-1301USA000768

PATIENT
  Sex: Male

DRUGS (9)
  1. FOSAMAX [Suspect]
     Indication: OSTEOPOROSIS
     Dosage: 70 MG, QW
     Route: 048
     Dates: start: 200102, end: 200902
  2. ALENDRONATE SODIUM [Suspect]
     Indication: OSTEOPOROSIS
     Dosage: 70 MG, QW
     Route: 048
     Dates: start: 200903, end: 201003
  3. CALCIUM (UNSPECIFIED) [Concomitant]
     Indication: OSTEOPOROSIS
     Dosage: 500 MG, BID
  4. ASTELIN (AZELASTINE HYDROCHLORIDE) [Concomitant]
     Indication: HYPERSENSITIVITY
     Dosage: UNK
     Dates: start: 200409, end: 201002
  5. NASACORT [Concomitant]
     Indication: HYPERSENSITIVITY
     Dosage: UNK
     Dates: start: 200405, end: 200707
  6. RHINOCORT (BECLOMETHASONE DIPROPIONATE) [Concomitant]
     Indication: HYPERSENSITIVITY
     Dosage: UNK
     Dates: start: 200504, end: 200506
  7. FEXOFENADINE HYDROCHLORIDE [Concomitant]
     Indication: HYPERSENSITIVITY
     Dosage: UNK
     Dates: start: 200706, end: 200707
  8. CHLORPHENIRAMINE [Concomitant]
     Indication: HYPERSENSITIVITY
     Dosage: UNK
     Dates: start: 200707, end: 200708
  9. NASONEX [Concomitant]
     Indication: HYPERSENSITIVITY
     Dosage: UNK
     Dates: start: 200205, end: 201002

REACTIONS (49)
  - Femur fracture [Not Recovered/Not Resolved]
  - Intramedullary rod insertion [Unknown]
  - Femur fracture [Unknown]
  - Parathyroid gland operation [Unknown]
  - Osteoporosis [Fatal]
  - Coronary artery disease [Fatal]
  - Dementia [Fatal]
  - Cardiac failure congestive [Fatal]
  - Implantable defibrillator insertion [Unknown]
  - Chronic obstructive pulmonary disease [Fatal]
  - Tibia fracture [Unknown]
  - Osteoporosis [Unknown]
  - Stress fracture [Unknown]
  - Bone density decreased [Unknown]
  - Renal failure chronic [Not Recovered/Not Resolved]
  - Prostatectomy [Unknown]
  - Blood pressure increased [Unknown]
  - Adverse event [Unknown]
  - Hyperparathyroidism [Unknown]
  - Vitamin D deficiency [Unknown]
  - Cardiovascular disorder [Unknown]
  - Pain [Unknown]
  - Inflammation [Unknown]
  - Infection [Unknown]
  - Dyspnoea [Unknown]
  - Anxiety [Unknown]
  - Depression [Unknown]
  - Bladder disorder [Unknown]
  - Nasal congestion [Unknown]
  - Anticoagulant therapy [Unknown]
  - Oral pain [Unknown]
  - Cardiac failure congestive [Unknown]
  - Atrial fibrillation [Unknown]
  - Swelling [Unknown]
  - Blood uric acid [Unknown]
  - Pain [Unknown]
  - Fibula fracture [Unknown]
  - Heart rate [Unknown]
  - Blood cholesterol increased [Unknown]
  - Insomnia [Unknown]
  - Benign prostatic hyperplasia [Unknown]
  - Cataract operation [Unknown]
  - Deep vein thrombosis [Unknown]
  - Gout [Unknown]
  - Aortic aneurysm [Unknown]
  - Tonsillectomy [Unknown]
  - Adenoidectomy [Unknown]
  - Peptic ulcer [Unknown]
  - Gastrooesophageal reflux disease [Unknown]
